FAERS Safety Report 5826810-1 (Version None)
Quarter: 2008Q3

REPORT INFORMATION
  Report Type: 
  Country: None (occurrence: None)
  Receive Date: 20080728
  Receipt Date: 20080728
  Transmission Date: 20090109
  Serious: Yes (Hospitalization)
  Sender: FDA-Public Use
  Company Number: None

PATIENT
  Age: 73 Year
  Sex: Female
  Weight: 73 kg

DRUGS (2)
  1. VENLAFAXINE HCL [Suspect]
     Indication: DEPRESSION
     Dosage: 150MG DAILY PO
     Route: 048
  2. FLUOXETINE HCL [Suspect]
     Dosage: 40MG DAILY PO
     Route: 048

REACTIONS (7)
  - AGITATION [None]
  - BACK PAIN [None]
  - CONFUSIONAL STATE [None]
  - DELIRIUM [None]
  - LETHARGY [None]
  - MENTAL STATUS CHANGES [None]
  - SEROTONIN SYNDROME [None]
